FAERS Safety Report 8904306 (Version 1)
Quarter: 2012Q4

REPORT INFORMATION
  Report Type: 
  Country: NO (occurrence: NO)
  Receive Date: 20121112
  Receipt Date: 20121112
  Transmission Date: 20130627
  Serious: Yes (Hospitalization)
  Sender: FDA-Public Use
  Company Number: NO-GLAXOSMITHKLINE-B0843013A

PATIENT
  Age: 37 Year
  Sex: Female

DRUGS (2)
  1. LAMICTAL [Suspect]
     Indication: BIPOLAR II DISORDER
     Dosage: 750MG per day
     Route: 048
  2. QUETIAPINE [Suspect]
     Indication: BIPOLAR II DISORDER
     Dosage: 100MG Per day
     Route: 048

REACTIONS (1)
  - Foetal death [Unknown]
